FAERS Safety Report 5049459-X (Version None)
Quarter: 2006Q2

REPORT INFORMATION
  Report Type: 
  Country: None (occurrence: None)
  Receive Date: 20060613
  Receipt Date: 20060222
  Transmission Date: 20061013
  Serious: No
  Sender: FDA-Public Use
  Company Number: 2006-00406

PATIENT
  Sex: Male

DRUGS (2)
  1. VELCADE [Suspect]
     Indication: MANTLE CELL LYMPHOMA
     Dosage: SEE IMAGE
     Route: 042
     Dates: start: 20051201, end: 20060101
  2. VELCADE [Suspect]
     Indication: MANTLE CELL LYMPHOMA
     Dosage: SEE IMAGE
     Route: 042
     Dates: start: 20060101

REACTIONS (2)
  - PALPITATIONS [None]
  - PLATELET COUNT DECREASED [None]
